FAERS Safety Report 12729702 (Version 1)
Quarter: 2016Q3

REPORT INFORMATION
  Report Type: Spontaneous
  Country: DE (occurrence: DE)
  Receive Date: 20160909
  Receipt Date: 20160909
  Transmission Date: 20161109
  Serious: Yes (Other)
  Sender: FDA-Public Use
  Company Number: DE-PERRIGO-16DE019735

PATIENT
  Age: 65 Year
  Sex: Female

DRUGS (10)
  1. TEMOZOLOMIDE 100 MG 1452633258 [Suspect]
     Active Substance: TEMOZOLOMIDE
     Dosage: 200 MG/M2, QD
     Route: 048
  2. LEVETIRACETAM. [Suspect]
     Active Substance: LEVETIRACETAM
     Dosage: 2750 MG, QD
     Route: 065
  3. COPTIS-KUSH [Suspect]
     Active Substance: HERBALS
     Indication: PRODUCT USED FOR UNKNOWN INDICATION
     Dosage: 20 DOSES
     Route: 065
     Dates: start: 20150920, end: 20151009
  4. ARTESUNATE [Suspect]
     Active Substance: ARTESUNATE
     Indication: PRODUCT USED FOR UNKNOWN INDICATION
     Dosage: 200 MG, QD
     Route: 048
     Dates: start: 20150920, end: 20151020
  5. TEMOZOLOMIDE 100 MG 1452633258 [Suspect]
     Active Substance: TEMOZOLOMIDE
     Dosage: 150 MG/M2, QD 2 CYCLES
     Route: 048
  6. TEMOZOLOMIDE 100 MG 1452633258 [Suspect]
     Active Substance: TEMOZOLOMIDE
     Indication: GLIOBLASTOMA MULTIFORME
     Dosage: 50 MG/M2, QD
     Route: 048
     Dates: start: 201405
  7. CLOBAZAM [Suspect]
     Active Substance: CLOBAZAM
     Indication: PARTIAL SEIZURES
     Dosage: 5 MG, QD, PRN
     Route: 065
     Dates: start: 201405
  8. LORAZEPAM. [Suspect]
     Active Substance: LORAZEPAM
     Indication: PARTIAL SEIZURES
     Dosage: 1 MG, QD, PRN
     Route: 065
     Dates: start: 201405
  9. ONDANSETRON [Concomitant]
     Active Substance: ONDANSETRON
     Indication: PROPHYLAXIS OF NAUSEA AND VOMITING
     Dosage: 8 MG, QD
     Route: 065
  10. LEVETIRACETAM. [Suspect]
     Active Substance: LEVETIRACETAM
     Indication: PARTIAL SEIZURES
     Dosage: 1000 MG, QD
     Route: 065
     Dates: start: 201405

REACTIONS (3)
  - Chest pain [Recovered/Resolved]
  - Hepatotoxicity [Recovered/Resolved]
  - Potentiating drug interaction [Recovered/Resolved]
